FAERS Safety Report 5237740-0 (Version None)
Quarter: 2007Q1

REPORT INFORMATION
  Report Type: 
  Country: None (occurrence: None)
  Receive Date: 20070214
  Receipt Date: 20070209
  Transmission Date: 20070707
  Serious: Yes (Hospitalization)
  Sender: FDA-Public Use
  Company Number: US-GLAXOSMITHKLINE-A0584840A

PATIENT
  Age: 81 Year
  Sex: Female

DRUGS (8)
  1. LAMICTAL [Suspect]
     Indication: EPILEPSY
     Dosage: 750MG PER DAY
     Route: 048
     Dates: start: 19810101
  2. KEPPRA [Concomitant]
  3. DILANTIN [Concomitant]
  4. KLONOPIN [Concomitant]
  5. DURICEF [Concomitant]
  6. EVISTA [Concomitant]
  7. ZONEGRAN [Concomitant]
  8. VITAMIN CAP [Concomitant]

REACTIONS (15)
  - AMNESIA [None]
  - ARTHRALGIA [None]
  - CONFUSIONAL STATE [None]
  - CONVULSION [None]
  - DEPRESSION [None]
  - DISORIENTATION [None]
  - DISTURBANCE IN ATTENTION [None]
  - DIZZINESS [None]
  - FATIGUE [None]
  - LETHARGY [None]
  - MENTAL DISORDER [None]
  - MYALGIA [None]
  - NAUSEA [None]
  - PAIN [None]
  - VISION BLURRED [None]
